FAERS Safety Report 5779734-2 (Version None)
Quarter: 2008Q2

REPORT INFORMATION
  Report Type: 
  Country: None (occurrence: None)
  Receive Date: 20080619
  Receipt Date: 20080615
  Transmission Date: 20081010
  Serious: Yes (Other)
  Sender: FDA-Public Use
  Company Number: US-AMGEN-QUU287361

PATIENT
  Sex: Female

DRUGS (1)
  1. ENBREL [Suspect]
     Indication: RHEUMATOID ARTHRITIS
     Route: 058

REACTIONS (5)
  - EMPHYSEMA [None]
  - INFECTION [None]
  - LIGAMENT INJURY [None]
  - LOWER RESPIRATORY TRACT INFECTION [None]
  - RHEUMATOID ARTHRITIS [None]
